FAERS Safety Report 12237138 (Version 1)
Quarter: 2016Q2

REPORT INFORMATION
  Report Type: Spontaneous
  Country: US (occurrence: US)
  Receive Date: 20160405
  Receipt Date: 20160405
  Transmission Date: 20160815
  Serious: No
  Sender: FDA-Public Use
  Company Number: US-BAYER-2016-064555

PATIENT
  Age: 4 Year
  Sex: Male
  Weight: 22.68 kg

DRUGS (1)
  1. MIRALAX [Suspect]
     Active Substance: POLYETHYLENE GLYCOL 3350
     Dosage: DRANK SOME, ONCE
     Dates: start: 20160331, end: 20160331

REACTIONS (2)
  - Accidental exposure to product by child [None]
  - Product use issue [None]

NARRATIVE: CASE EVENT DATE: 20160331
